FAERS Safety Report 26043115 (Version 1)
Quarter: 2025Q4

REPORT INFORMATION
  Report Type: Other
  Country: EU (occurrence: EU)
  Receive Date: 20251113
  Receipt Date: 20251113
  Transmission Date: 20260117
  Serious: Yes (Other)
  Sender: Integrated Therapeutic Solutions
  Company Number: EU-Integrated Therapeutic Solutions Inc.-2188484

PATIENT
  Age: 21 Year
  Sex: Female

DRUGS (1)
  1. PYLERA [Suspect]
     Active Substance: BISMUTH SUBCITRATE POTASSIUM\METRONIDAZOLE\TETRACYCLINE HYDROCHLORIDE
     Indication: Product used for unknown indication
     Dates: start: 20220114, end: 20220117

REACTIONS (22)
  - Asthenia [Recovering/Resolving]
  - Pain in extremity [Recovering/Resolving]
  - Back pain [Recovering/Resolving]
  - Oropharyngeal pain [Recovering/Resolving]
  - Neck pain [Recovering/Resolving]
  - Pollakiuria [Recovering/Resolving]
  - Insomnia [Recovering/Resolving]
  - Erythema [Recovering/Resolving]
  - Burning sensation [Recovering/Resolving]
  - Pruritus [Recovering/Resolving]
  - Bradycardia [Recovering/Resolving]
  - Palpitations [Recovering/Resolving]
  - Chest discomfort [Recovering/Resolving]
  - Chest pain [Recovering/Resolving]
  - Visual impairment [Recovering/Resolving]
  - Hyperhidrosis [Recovering/Resolving]
  - Tremor [Recovering/Resolving]
  - Feeling of body temperature change [Recovering/Resolving]
  - Vomiting [Recovering/Resolving]
  - Headache [Recovering/Resolving]
  - Weight decreased [Recovering/Resolving]
  - Fatigue [Recovering/Resolving]
